FAERS Safety Report 9862257 (Version 2)
Quarter: 2014Q1

REPORT INFORMATION
  Report Type: Spontaneous
  Country: ES (occurrence: ES)
  Receive Date: 20140203
  Receipt Date: 20140206
  Transmission Date: 20141002
  Serious: Yes (Other)
  Sender: FDA-Public Use
  Company Number: ES-JNJFOC-20140119479

PATIENT
  Age: 50 Year
  Sex: Male
  Weight: 95 kg

DRUGS (4)
  1. STELARA [Suspect]
     Indication: CROHN^S DISEASE
     Dosage: TOTAL NUMBER OF INJECTIONS RECEIVED BY THE PATIENT WAS 4
     Route: 058
     Dates: start: 20130704, end: 20140115
  2. COLESTID [Concomitant]
     Dosage: MORE THAN 4 YEARS AGO
     Route: 048
  3. ENALAPRIL [Concomitant]
     Route: 048
  4. VITAMIN B12 [Concomitant]
     Route: 030

REACTIONS (2)
  - VIIth nerve paralysis [Recovered/Resolved]
  - Off label use [Unknown]
